FAERS Safety Report 5274608-8 (Version None)
Quarter: 2007Q1

REPORT INFORMATION
  Report Type: 
  Country: None (occurrence: None)
  Receive Date: 20070320
  Receipt Date: 20070312
  Transmission Date: 20070707
  Serious: Yes (Hospitalization)
  Sender: FDA-Public Use
  Company Number: 237858

PATIENT
  Age: 66 Year
  Sex: Female

DRUGS (4)
  1. XOLAIR [Suspect]
     Indication: ASTHMA
     Dosage: UNK, Q2W, UNK
     Dates: start: 20050303
  2. ADVAIR DISKUS 100/50 [Concomitant]
  3. SINGULAIR [Concomitant]
  4. ALLERGY INJECTIONS (ALLERGENIC EXTRACTS) [Concomitant]

REACTIONS (1)
  - ASTHMA [None]
